FAERS Safety Report 4346237-1 (Version None)
Quarter: 2004Q2

REPORT INFORMATION
  Report Type: 
  Country: None (occurrence: None)
  Receive Date: 20040426
  Receipt Date: 20010206
  Transmission Date: 20050107
  Serious: Yes (Hospitalization)
  Sender: FDA-Public Use
  Company Number: 200111023FR

PATIENT
  Sex: Female

DRUGS (7)
  1. NESDONAL [Suspect]
     Indication: EPILEPSY
     Route: 042
     Dates: start: 20001006, end: 20001018
  2. SABRIL [Suspect]
     Indication: EPILEPSY
     Route: 048
     Dates: start: 19980715, end: 20001010
  3. LOVENOX [Suspect]
     Route: 042
     Dates: start: 20001004, end: 20001011
  4. DI-HYDAN [Suspect]
     Indication: EPILEPSY
     Route: 048
     Dates: start: 20001004, end: 20001010
  5. AMOXICILLIN [Suspect]
     Route: 042
     Dates: start: 20001006, end: 20001014
  6. GABITRIL [Suspect]
     Indication: EPILEPSY
     Route: 048
  7. LAMOTRIGINE [Concomitant]
     Indication: EPILEPSY
     Route: 048

REACTIONS (21)
  - ACUTE RESPIRATORY FAILURE [None]
  - CHOLESTASIS [None]
  - COAGULATION FACTOR V LEVEL DECREASED [None]
  - COAGULOPATHY [None]
  - COMA [None]
  - DRUG EFFECT DECREASED [None]
  - DRUG LEVEL DECREASED [None]
  - DRUG LEVEL INCREASED [None]
  - EPILEPSY [None]
  - GRAND MAL CONVULSION [None]
  - HEPATIC FAILURE [None]
  - HEPATITIS [None]
  - HEPATOCELLULAR DAMAGE [None]
  - INCREASED BRONCHIAL SECRETION [None]
  - NEUTROPENIA [None]
  - OVERDOSE [None]
  - PNEUMONIA ASPIRATION [None]
  - PNEUMONIA PNEUMOCOCCAL [None]
  - PROTHROMBIN TIME PROLONGED [None]
  - SUICIDE ATTEMPT [None]
  - WHITE BLOOD CELL COUNT [None]
